FAERS Safety Report 12557626 (Version 18)
Quarter: 2020Q3

REPORT INFORMATION
  Report Type: Report from Study
  Country: FR (occurrence: FR)
  Receive Date: 20160714
  Receipt Date: 20180627
  Transmission Date: 20201105
  Serious: Yes (Hospitalization)
  Sender: FDA-Public Use
  Company Number: FR-JNJFOC-20160700586

PATIENT
  Age: 67 Year
  Sex: Male
  Weight: 70 kg

DRUGS (31)
  1. PRAVASTATINE [Concomitant]
     Active Substance: PRAVASTATIN
     Indication: HYPERCHOLESTEROLAEMIA
     Route: 048
     Dates: start: 2010
  2. FOLINATE DE CALCIUM [Concomitant]
     Active Substance: LEUCOVORIN CALCIUM
     Indication: ANTI-INFECTIVE THERAPY
     Route: 048
     Dates: start: 20151111
  3. FOLINATE DE CALCIUM [Concomitant]
     Active Substance: LEUCOVORIN CALCIUM
     Indication: PROPHYLAXIS
     Route: 048
     Dates: start: 20151111
  4. ACETYLSALICYLATE LYSINE [Concomitant]
     Active Substance: ASPIRIN DL-LYSINE
     Indication: EMBOLISM
     Route: 048
     Dates: start: 20160203
  5. BICARBONATE SODIUM [Concomitant]
     Active Substance: SODIUM BICARBONATE
     Indication: MUCOSAL INFLAMMATION
     Route: 048
     Dates: start: 20151123
  6. KARDEGIC [Concomitant]
     Active Substance: ASPIRIN DL-LYSINE
     Indication: THROMBOSIS PROPHYLAXIS
     Route: 048
     Dates: start: 20160130
  7. DARATUMUMAB [Suspect]
     Active Substance: DARATUMUMAB
     Route: 042
  8. DEXAMETHASONE. [Concomitant]
     Active Substance: DEXAMETHASONE
     Indication: PLASMA CELL MYELOMA
     Route: 048
     Dates: start: 20151109
  9. LENALIDOMIDE [Concomitant]
     Active Substance: LENALIDOMIDE
     Indication: PLASMA CELL MYELOMA
     Dosage: 21 DAYS/28
     Route: 048
     Dates: start: 20151109
  10. MACROGOL [Concomitant]
     Active Substance: POLYETHYLENE GLYCOLS
     Indication: CONSTIPATION
     Route: 048
     Dates: start: 20151021
  11. COTRIMOXAZOLE [Concomitant]
     Active Substance: SULFAMETHOXAZOLE\TRIMETHOPRIM
     Indication: ANTI-INFECTIVE THERAPY
     Route: 048
     Dates: start: 20151111
  12. SOTALOL. [Concomitant]
     Active Substance: SOTALOL
     Indication: HYPERTENSION
     Route: 048
     Dates: start: 2010
  13. LOVENOX [Concomitant]
     Active Substance: ENOXAPARIN SODIUM
     Indication: PROPHYLAXIS
     Route: 058
     Dates: start: 20151109
  14. PARACETAMOL [Concomitant]
     Active Substance: ACETAMINOPHEN
     Indication: BONE PAIN
     Route: 048
     Dates: start: 20151021
  15. VALACICLOVIR [Concomitant]
     Active Substance: VALACYCLOVIR HYDROCHLORIDE
     Indication: ANTI-INFECTIVE THERAPY
     Route: 048
     Dates: start: 20151111
  16. ACIDE ZOLEDRONIQUE [Concomitant]
     Active Substance: ZOLEDRONIC ACID
     Indication: BONE PAIN
     Route: 042
     Dates: start: 20151021
  17. OXYCONTIN [Concomitant]
     Active Substance: OXYCODONE HYDROCHLORIDE
     Indication: BONE PAIN
     Route: 048
     Dates: start: 201601
  18. OXYCODONE [Concomitant]
     Active Substance: OXYCODONE
     Indication: BONE PAIN
     Dates: start: 201601
  19. DARATUMUMAB [Suspect]
     Active Substance: DARATUMUMAB
     Indication: PLASMA CELL MYELOMA
     Route: 042
     Dates: start: 20151109
  20. CETIRIZINE [Concomitant]
     Active Substance: CETIRIZINE HYDROCHLORIDE
     Indication: SEASONAL ALLERGY
     Route: 048
     Dates: start: 20151021
  21. LERCANIDIPINE [Concomitant]
     Active Substance: LERCANIDIPINE
     Indication: HYPERTENSION
     Route: 048
     Dates: start: 20160223
  22. TRIAMCINOLONE [Concomitant]
     Active Substance: TRIAMCINOLONE
     Indication: SEASONAL ALLERGY
     Route: 045
     Dates: start: 20151110
  23. ZARZIO [Concomitant]
     Active Substance: FILGRASTIM
     Indication: NEUTROPHIL COUNT DECREASED
     Route: 058
     Dates: start: 20160105
  24. ORACILLINE [Concomitant]
     Active Substance: PENICILLIN V
     Indication: ANTI-INFECTIVE THERAPY
     Route: 048
     Dates: start: 20151111
  25. ORACILLINE [Concomitant]
     Active Substance: PENICILLIN V
     Indication: PROPHYLAXIS
     Route: 048
     Dates: start: 20151111
  26. LOVENOX [Concomitant]
     Active Substance: ENOXAPARIN SODIUM
     Indication: EMBOLISM
     Route: 058
     Dates: start: 20151109
  27. ACETYLSALICYLATE LYSINE [Concomitant]
     Active Substance: ASPIRIN DL-LYSINE
     Indication: PROPHYLAXIS
     Route: 048
     Dates: start: 20160203
  28. VERSATIS [Concomitant]
     Active Substance: LIDOCAINE
     Indication: BONE PAIN
     Dosage: 5
     Route: 061
     Dates: start: 20151130
  29. SALMETEROL [Concomitant]
     Active Substance: SALMETEROL
     Indication: SEASONAL ALLERGY
     Dosage: 250/50 UG
     Route: 055
  30. FLUTICASONE. [Concomitant]
     Active Substance: FLUTICASONE
     Indication: SEASONAL ALLERGY
     Dosage: 250/50 UG
     Route: 055
     Dates: start: 20151110
  31. COTRIMOXAZOLE [Concomitant]
     Active Substance: SULFAMETHOXAZOLE\TRIMETHOPRIM
     Indication: PROPHYLAXIS
     Route: 048
     Dates: start: 20151111

REACTIONS (4)
  - Vascular device infection [Recovered/Resolved]
  - Septic embolus [Recovered/Resolved]
  - Sepsis [Recovered/Resolved]
  - Endocarditis [Recovered/Resolved]

NARRATIVE: CASE EVENT DATE: 20160625
